FAERS Safety Report 6797692-9 (Version None)
Quarter: 2010Q2

REPORT INFORMATION
  Report Type: 
  Country: None (occurrence: None)
  Receive Date: 20100623
  Receipt Date: 20100527
  Transmission Date: 20101027
  Serious: Yes (Other)
  Sender: FDA-Public Use
  Company Number: JP-SOLVAY-00310003557

PATIENT
  Age: 50 Year
  Sex: Female

DRUGS (5)
  1. FLUVOXAMINE MALEATE [Suspect]
     Indication: DRUG USE FOR UNKNOWN INDICATION
     Dosage: 14 DOSAGE FORM ORAL
     Route: 048
     Dates: start: 20100526, end: 20100526
  2. SULPIRIDE (SULPIRIDE) [Suspect]
     Indication: DRUG USE FOR UNKNOWN INDICATION
     Dosage: 12 DOSAGE FORM, ORAL
     Route: 048
     Dates: start: 20100526, end: 20100526
  3. LOXONIN (LOXOPROFEN SODIUM) [Suspect]
     Indication: DRUG USE FOR UNKNOWN INDICATION
     Dosage: 9 DOSAGE FORM ORAL
     Route: 048
     Dates: start: 20100526, end: 20100526
  4. MUCOSTA (REBAMIPIDE) [Suspect]
     Indication: DRUG USE FOR UNKNOWN INDICATION
     Dosage: 9 DOSAGE FORM ORAL
     Route: 048
     Dates: start: 20100526, end: 20100526
  5. EMPYNASE P (EMPYNASE P) [Suspect]
     Indication: DRUG USE FOR UNKNOWN INDICATION
     Dosage: 9 DOSAGE FORM ORAL
     Route: 048
     Dates: start: 20100526, end: 20100526

REACTIONS (1)
  - MULTIPLE DRUG OVERDOSE INTENTIONAL [None]
